FAERS Safety Report 24028457 (Version 1)
Quarter: 2024Q2

REPORT INFORMATION
  Report Type: Spontaneous
  Country: US (occurrence: None)
  Receive Date: 20240627
  Receipt Date: 20240627
  Transmission Date: 20240716
  Serious: Yes (Life-Threatening, Hospitalization)
  Sender: FDA-Public Use
  Company Number: None

PATIENT
  Age: 76 Year
  Sex: Male
  Weight: 101.25 kg

DRUGS (10)
  1. ABIRATERONE. [Suspect]
     Active Substance: ABIRATERONE ACETATE
     Indication: Prostate cancer
     Route: 048
     Dates: start: 20220101, end: 20240424
  2. PREDNISONE [Concomitant]
     Active Substance: PREDNISONE
     Dates: start: 20220101
  3. LUPRON 22.5MG INJ KIT [Concomitant]
     Dates: start: 20220101
  4. OMNDANSETRON ODT 5MG [Concomitant]
  5. ATORVASTATIN 40MG TAB [Concomitant]
  6. OMEPRAZOLE [Concomitant]
     Active Substance: OMEPRAZOLE
  7. ZOLIPDEM 5MG TABLET [Concomitant]
  8. VITAMIN B COMPLEX [Concomitant]
     Active Substance: CYANOCOBALAMIN\DEXPANTHENOL\NIACINAMIDE\PYRIDOXINE HYDROCHLORIDE\RIBOFLAVIN 5^-PHOSPHATE SODIUM\THIA
  9. CHOLECALCIFEROL 100MCG [Concomitant]
  10. HYZAAR 100-25MG TABLET [Concomitant]

REACTIONS (1)
  - Vertebrobasilar stroke [None]

NARRATIVE: CASE EVENT DATE: 20240424
